FAERS Safety Report 4395473-7 (Version None)
Quarter: 2004Q3

REPORT INFORMATION
  Report Type: 
  Country: None (occurrence: None)
  Receive Date: 20040708
  Receipt Date: 20040625
  Transmission Date: 20050211
  Serious: Yes (Other)
  Sender: FDA-Public Use
  Company Number: US-JNJFOC-20040305943

PATIENT
  Age: 55 Year
  Sex: Male
  Weight: 108.8633 kg

DRUGS (30)
  1. REMICADE [Suspect]
     Indication: RHEUMATOID ARTHRITIS
     Dosage: SEE IMAGE
     Route: 042
     Dates: start: 20030102
  2. REMICADE [Suspect]
     Indication: RHEUMATOID ARTHRITIS
     Dosage: SEE IMAGE
     Route: 042
     Dates: start: 20030203
  3. REMICADE [Suspect]
     Indication: RHEUMATOID ARTHRITIS
     Dosage: SEE IMAGE
     Route: 042
     Dates: start: 20030303
  4. REMICADE [Suspect]
     Indication: RHEUMATOID ARTHRITIS
     Dosage: SEE IMAGE
     Route: 042
     Dates: start: 20030428
  5. REMICADE [Suspect]
     Indication: RHEUMATOID ARTHRITIS
     Dosage: SEE IMAGE
     Route: 042
     Dates: start: 20030626
  6. METHOTREXATE [Concomitant]
  7. PREDNISONE TAB [Concomitant]
  8. PLAQUENIL [Concomitant]
  9. VIOXX [Concomitant]
  10. FOLIC ACID [Concomitant]
  11. FESO4 (FERROUS SULFATE) [Concomitant]
  12. GAVISCON [Concomitant]
  13. MVI (MULTIVITAMINS) [Concomitant]
  14. THEOPHYLLINE [Concomitant]
  15. ATROVENT [Concomitant]
  16. ALUPENT [Concomitant]
  17. VITAMIN C (ASCORBIC ACID) [Concomitant]
  18. BENZONATATE (BENZONATATE) [Concomitant]
  19. ZANTAC [Concomitant]
  20. TERAZOSIN (TERAZOSIN) [Concomitant]
  21. ACCOLATE [Concomitant]
  22. ALLEGRA (EXOFENADINE HYDROCHLORIDE) [Concomitant]
  23. FOSAMAX [Concomitant]
  24. FLOVENT [Concomitant]
  25. HYDROCORTISONE [Concomitant]
  26. SENOKOT [Concomitant]
  27. DARVOCET-N 100 [Concomitant]
  28. RHINOCORT [Concomitant]
  29. TRIAM/HCTZ (TRIAMCINOLONE ACETONIDE) [Concomitant]
  30. CLARITIN [Concomitant]

REACTIONS (1)
  - COLON CANCER [None]
